FAERS Safety Report 11786414 (Version 2)
Quarter: 2019Q4

REPORT INFORMATION
  Report Type: Spontaneous
  Country: US (occurrence: US)
  Receive Date: 20151130
  Receipt Date: 20191112
  Transmission Date: 20200122
  Serious: Yes (Death, Hospitalization, Disabling, Other)
  Sender: FDA-Public Use
  Company Number: US-009507513-1511USA015703

PATIENT
  Sex: Male

DRUGS (6)
  1. ONGLYZA [Suspect]
     Active Substance: SAXAGLIPTIN HYDROCHLORIDE
     Indication: TYPE 2 DIABETES MELLITUS
     Dosage: UNK
     Dates: start: 20140812, end: 201409
  2. VICTOZA [Suspect]
     Active Substance: LIRAGLUTIDE
     Dosage: 18 MICROGRAM, QD
     Dates: start: 20111014, end: 20120328
  3. VICTOZA [Suspect]
     Active Substance: LIRAGLUTIDE
     Dosage: 18 MICROGRAM, QD
     Dates: start: 20120616, end: 20130219
  4. VICTOZA [Suspect]
     Active Substance: LIRAGLUTIDE
     Dosage: 18 MICROGRAM, QD
     Dates: start: 20120228, end: 20120428
  5. JANUVIA [Suspect]
     Active Substance: SITAGLIPTIN PHOSPHATE
     Indication: TYPE 2 DIABETES MELLITUS
     Dosage: 100 MILLIGRAM, QD
     Route: 048
     Dates: start: 20101019, end: 20120124
  6. VICTOZA [Suspect]
     Active Substance: LIRAGLUTIDE
     Dosage: 18 MICROGRAM, QD
     Dates: start: 20130723, end: 20131021

REACTIONS (12)
  - Pneumonia [Unknown]
  - Hypotension [Unknown]
  - Pancreatic carcinoma [Fatal]
  - Mental status changes [Unknown]
  - Nephrolithiasis [Unknown]
  - Thoracic vertebral fracture [Unknown]
  - Leukocytosis [Unknown]
  - Metastases to liver [Unknown]
  - Acute kidney injury [Unknown]
  - Hypoxia [Unknown]
  - Septic shock [Unknown]
  - Blood calcium increased [Unknown]

NARRATIVE: CASE EVENT DATE: 2014
